FAERS Safety Report 14884711 (Version 2)
Quarter: 2018Q2

REPORT INFORMATION
  Report Type: Spontaneous
  Country: GB (occurrence: GB)
  Receive Date: 20180511
  Receipt Date: 20180529
  Transmission Date: 20180711
  Serious: Yes (Other)
  Sender: FDA-Public Use
  Company Number: GB-BAYER-2018-087494

PATIENT
  Age: 38 Year
  Sex: Female

DRUGS (1)
  1. MIRENA [Suspect]
     Active Substance: LEVONORGESTREL
     Indication: MENORRHAGIA
     Dosage: 20 MCG/24HR, CONT
     Route: 015
     Dates: start: 20170725, end: 20180427

REACTIONS (26)
  - Breast pain [None]
  - Insomnia [None]
  - Anhedonia [None]
  - Acne [None]
  - Suicidal ideation [None]
  - Loss of libido [None]
  - Prolapse [None]
  - Mastitis [None]
  - Ehlers-Danlos syndrome [None]
  - Musculoskeletal pain [None]
  - Aggression [None]
  - Crying [None]
  - Hypermobility syndrome [None]
  - Screaming [None]
  - Nervousness [None]
  - Palpitations [None]
  - Partner stress [None]
  - Arthralgia [None]
  - Abnormal dreams [None]
  - Anxiety [None]
  - Osteoarthritis [None]
  - Depression [None]
  - Feeling abnormal [None]
  - Night sweats [None]
  - Fatigue [None]
  - Chills [None]
